FAERS Safety Report 17882458 (Version 1)
Quarter: 2020Q2

REPORT INFORMATION
  Report Type: Spontaneous
  Country: SE (occurrence: SE)
  Receive Date: 20200610
  Receipt Date: 20200610
  Transmission Date: 20200714
  Serious: Yes (Other)
  Sender: FDA-Public Use
  Company Number: SE-JNJFOC-20200602931

PATIENT
  Age: 32 Year
  Sex: Female

DRUGS (1)
  1. RISPERDAL [Suspect]
     Active Substance: RISPERIDONE
     Indication: PSYCHOTIC DISORDER
     Route: 048

REACTIONS (2)
  - Neuropathy peripheral [Unknown]
  - Apathy [Unknown]

NARRATIVE: CASE EVENT DATE: 20150101
